FAERS Safety Report 6170832-0 (Version None)
Quarter: 2009Q2

REPORT INFORMATION
  Report Type: 
  Country: None (occurrence: None)
  Receive Date: 20090428
  Receipt Date: 20090420
  Transmission Date: 20091009
  Serious: Yes (Other)
  Sender: FDA-Public Use
  Company Number: US-AMGEN-US341410

PATIENT
  Sex: Female
  Weight: 93.1 kg

DRUGS (9)
  1. NPLATE [Suspect]
     Indication: IDIOPATHIC THROMBOCYTOPENIC PURPURA
     Route: 058
     Dates: start: 20090317
  2. VASOTEC [Concomitant]
     Route: 048
  3. ADVAIR HFA [Concomitant]
     Route: 055
  4. METFORMIN HCL [Concomitant]
     Route: 048
  5. IMMUNOGLOBULINS [Concomitant]
     Dates: start: 20071206
  6. RITUXIMAB [Concomitant]
     Dates: start: 20080827
  7. TYLENOL [Concomitant]
     Route: 065
  8. AMILORIDE HCL AND HYDROCHLOROTHIAZIDE [Concomitant]
     Route: 048
  9. PREDNISONE TAB [Concomitant]
     Route: 048

REACTIONS (4)
  - ARTHRALGIA [None]
  - ARTHRITIS [None]
  - HEADACHE [None]
  - PLATELET COUNT DECREASED [None]
